FAERS Safety Report 9342522 (Version 1)
Quarter: 2013Q2

REPORT INFORMATION
  Report Type: Spontaneous
  Country: US (occurrence: US)
  Receive Date: 20130611
  Receipt Date: 20130611
  Transmission Date: 20140414
  Serious: Yes (Other)
  Sender: FDA-Public Use
  Company Number: US-PFIZER INC-2013167494

PATIENT
  Sex: Female

DRUGS (1)
  1. ANBESOL REGULAR STRENGTH GEL [Suspect]
     Indication: ORAL PAIN
     Dosage: UNK

REACTIONS (6)
  - Accidental exposure to product [Unknown]
  - Dizziness [Not Recovered/Not Resolved]
  - Dyspnoea [Not Recovered/Not Resolved]
  - Palpitations [Not Recovered/Not Resolved]
  - Hypoaesthesia [Not Recovered/Not Resolved]
  - Emotional disorder [Not Recovered/Not Resolved]
